FAERS Safety Report 21593192 (Version 1)
Quarter: 2022Q4

REPORT INFORMATION
  Report Type: Spontaneous
  Country: US (occurrence: US)
  Receive Date: 20221114
  Receipt Date: 20221114
  Transmission Date: 20230112
  Serious: No
  Sender: FDA-Public Use
  Company Number: US-AMGEN-USASP2022195932

PATIENT
  Sex: Female

DRUGS (1)
  1. EVENITY [Suspect]
     Active Substance: ROMOSOZUMAB-AQQG
     Indication: Osteoporosis
     Dosage: 2 SHOT PER MONTH
     Route: 065
     Dates: start: 202207

REACTIONS (2)
  - Blood pressure fluctuation [Unknown]
  - Mental status changes [Unknown]

NARRATIVE: CASE EVENT DATE: 20220701
